FAERS Safety Report 5019927-5 (Version None)
Quarter: 2006Q2

REPORT INFORMATION
  Report Type: 
  Country: None (occurrence: None)
  Receive Date: 20060607
  Receipt Date: 20060404
  Transmission Date: 20061013
  Serious: Yes (Death, Hospitalization)
  Sender: FDA-Public Use
  Company Number: US-BRISTOL-MYERS SQUIBB COMPANY-13335518

PATIENT
  Age: 22 Year
  Sex: Female

DRUGS (8)
  1. ERBITUX [Suspect]
     Indication: COLORECTAL CANCER METASTATIC
     Dosage: INITIATED ON 24-OCT-2005-540 MG.ADMINISTERED FROM OCT-2005 TO 02-FEB-2006. LAST ON 16-FEB-2006.
     Route: 042
     Dates: start: 20050216, end: 20050216
  2. CPT-11 [Concomitant]
     Indication: COLORECTAL CANCER METASTATIC
     Dosage: ADMINISTERED ON 16-FEB-2006.
     Dates: start: 20060216, end: 20060216
  3. BENADRYL [Concomitant]
  4. FENTANYL [Concomitant]
  5. MORPHINE [Concomitant]
  6. FOLIC ACID [Concomitant]
     Indication: COLORECTAL CANCER METASTATIC
     Dosage: ADMINISTERED FROM OCT-2005 TO 02-FEB-2006, ADMINISTERED ON 16-FEB-2006.
     Dates: start: 20060216, end: 20060216
  7. FLUOROURACIL [Concomitant]
     Indication: COLORECTAL CANCER METASTATIC
     Dosage: ADMINISTERED FROM OCT-2005 TO 02-FEB-2006, ADMINISTERED ON 16-FEB-2006.
     Dates: start: 20060216, end: 20060216
  8. OXALIPLATIN [Concomitant]
     Indication: COLORECTAL CANCER METASTATIC
     Dosage: ADMINISTERED FROM OCT-2005 TO 02-FEB-2006.
     Dates: start: 20060202, end: 20060202

REACTIONS (3)
  - COLORECTAL CANCER METASTATIC [None]
  - INTESTINAL PERFORATION [None]
  - SEPSIS [None]
